FAERS Safety Report 17879996 (Version 1)
Quarter: 2020Q2

REPORT INFORMATION
  Report Type: Spontaneous
  Country: DK (occurrence: DK)
  Receive Date: 20200610
  Receipt Date: 20200610
  Transmission Date: 20200714
  Serious: Yes (Other)
  Sender: FDA-Public Use
  Company Number: DK-ROCHE-2616574

PATIENT
  Age: 59 Year
  Sex: Female

DRUGS (6)
  1. FLUPENTIXOL [Concomitant]
     Active Substance: FLUPENTIXOL
     Indication: SEDATIVE THERAPY
     Route: 048
     Dates: start: 20160322
  2. BETNOVAT MED CHINOFORM [Concomitant]
     Indication: ECZEMA INFECTED
     Dosage: STYRKE 1+30MG/G
     Route: 003
     Dates: start: 20130213
  3. OXAPAX [Concomitant]
     Active Substance: OXAZEPAM
     Indication: RESTLESSNESS
     Dosage: STYRKE: 15MG
     Route: 048
     Dates: start: 20170118
  4. PARACETAMOL [Concomitant]
     Active Substance: ACETAMINOPHEN
     Indication: PAIN
     Dosage: 1-2 TABLETTER 3-4 GANGE DAGLIGT. ?STYRKE: 500MG
     Route: 048
     Dates: start: 20140122
  5. HJERTEMAGNYL [ACETYLSALICYLIC ACID;MAGNESIUM OXIDE] [Concomitant]
     Indication: MYELOPROLIFERATIVE NEOPLASM
     Dosage: STYRKE: 75MG
     Route: 048
     Dates: start: 20120109
  6. PEGASYS [Suspect]
     Active Substance: PEGINTERFERON ALFA-2A
     Indication: PRIMARY MYELOFIBROSIS
     Route: 058
     Dates: start: 20171207, end: 201912

REACTIONS (3)
  - Autoimmune hepatitis [Recovering/Resolving]
  - Hepatic enzyme increased [Recovered/Resolved]
  - Smooth muscle antibody positive [Unknown]

NARRATIVE: CASE EVENT DATE: 2019
